FAERS Safety Report 8410001-4 (Version None)
Quarter: 2012Q2

REPORT INFORMATION
  Report Type: 
  Country: None (occurrence: None)
  Receive Date: 20120605
  Receipt Date: 20120529
  Transmission Date: 20120825
  Serious: Yes (Hospitalization)
  Sender: FDA-Public Use
  Company Number: US-BAYER-2011-093369

PATIENT
  Age: 30 Year
  Sex: Female
  Weight: 125 kg

DRUGS (18)
  1. AMITRIPTYLINE HCL [Concomitant]
     Indication: FIBROMYALGIA
     Dosage: UNK
     Route: 048
     Dates: start: 20090801
  2. AMITRIPTYLINE HCL [Concomitant]
     Dosage: 50MG DAILY
     Route: 048
     Dates: start: 20091110
  3. ASCORBIC ACID [Concomitant]
     Dosage: 1000MG DAILY
     Route: 048
     Dates: start: 20091110
  4. ROBITUSSIN DM [Concomitant]
     Indication: BRONCHITIS
     Dosage: AS INSTRUCTED.
     Route: 048
     Dates: start: 20091008, end: 20091110
  5. ALBUTEROL [Concomitant]
     Indication: DYSPNOEA
     Dosage: 2 PUFF(S), ONLY
     Route: 045
     Dates: start: 20091110
  6. VITAMIN D [Concomitant]
     Dosage: 2000 UNITS DAILY
     Route: 048
     Dates: start: 20091110
  7. FLUOXETINE [Concomitant]
     Indication: FIBROMYALGIA
     Dosage: 40 MG, DAILY
     Route: 048
     Dates: start: 20080101, end: 20090101
  8. YAZ [Suspect]
  9. LORTAB [Concomitant]
     Dosage: UNK
     Route: 048
     Dates: start: 20091110
  10. YAZ [Suspect]
  11. LEVOTHYROXINE SODIUM [Concomitant]
     Indication: HYPOTHYROIDISM
     Dosage: 50MCG ONCE DAILY
     Route: 048
     Dates: start: 20070101
  12. MUCINEX [Concomitant]
     Indication: BRONCHITIS
     Dosage: AS INSTRUCTED
     Route: 048
     Dates: start: 20091008, end: 20091110
  13. FLEXERIL [Concomitant]
     Indication: FIBROMYALGIA
     Dosage: UNK
     Route: 048
     Dates: start: 20010101
  14. YAZ [Suspect]
     Indication: ENDOMETRIOSIS
     Dosage: UNK
     Dates: start: 20090914, end: 20091110
  15. CLARITIN [Concomitant]
     Dosage: 10 MG, DAILY
     Route: 048
     Dates: start: 20091110
  16. IBUPROFEN [Concomitant]
     Indication: BRONCHITIS
     Dosage: AS INSTRUCTED
     Route: 048
     Dates: start: 20091008
  17. IBUPROFEN [Concomitant]
     Indication: FIBROMYALGIA
  18. FLEXERIL [Concomitant]
     Indication: BACK PAIN

REACTIONS (15)
  - INJURY [None]
  - FATIGUE [None]
  - DEPRESSION [None]
  - STRESS [None]
  - PULMONARY EMBOLISM [None]
  - FACIAL SPASM [None]
  - GENERAL PHYSICAL HEALTH DETERIORATION [None]
  - BRONCHITIS [None]
  - EMOTIONAL DISTRESS [None]
  - PAIN [None]
  - DIZZINESS [None]
  - CHEST PAIN [None]
  - ANXIETY [None]
  - LOSS OF CONSCIOUSNESS [None]
  - DYSPNOEA [None]
